FAERS Safety Report 5258300-1 (Version None)
Quarter: 2007Q1

REPORT INFORMATION
  Report Type: 
  Country: None (occurrence: None)
  Receive Date: 20070306
  Receipt Date: 20070306
  Transmission Date: 20070707
  Serious: No
  Sender: FDA-Public Use
  Company Number: None

PATIENT
  Age: 75 Year
  Sex: Male
  Weight: 78 kg

DRUGS (1)
  1. RECOMBINATE [Suspect]
     Indication: FACTOR VIII DEFICIENCY
     Dosage: 4000 UNITS  DAILY FOR 3 DAYS  IV
     Route: 042
     Dates: start: 20070304, end: 20070304

REACTIONS (1)
  - PHARMACEUTICAL PRODUCT COMPLAINT [None]
